FAERS Safety Report 23170338 (Version 2)
Quarter: 2023Q4

REPORT INFORMATION
  Report Type: Spontaneous
  Country: US (occurrence: US)
  Receive Date: 20231110
  Receipt Date: 20231208
  Transmission Date: 20240109
  Serious: Yes (Other)
  Sender: FDA-Public Use
  Company Number: US-BRISTOL-MYERS SQUIBB COMPANY-2023-159596

PATIENT
  Age: 80 Year
  Sex: Male

DRUGS (1)
  1. REVLIMID [Suspect]
     Active Substance: LENALIDOMIDE
     Indication: Myelodysplastic syndrome
     Dosage: FREQUENCY: QD X 21 DAYS ON, 7 DAYS OFF
     Route: 048

REACTIONS (9)
  - Fall [Unknown]
  - Head injury [Unknown]
  - Foot fracture [Unknown]
  - Limb discomfort [Unknown]
  - Vomiting [Unknown]
  - Personality change [Unknown]
  - Off label use [Unknown]
  - Cytopenia [Unknown]
  - Anger [Unknown]

NARRATIVE: CASE EVENT DATE: 20231103
